FAERS Safety Report 9521836 (Version 2)
Quarter: 2013Q4

REPORT INFORMATION
  Report Type: Spontaneous
  Country: FR (occurrence: FR)
  Receive Date: 20130913
  Receipt Date: 20131217
  Transmission Date: 20140711
  Serious: Yes (Hospitalization, Other)
  Sender: FDA-Public Use
  Company Number: FR-ASTRAZENECA-2013SE68089

PATIENT
  Age: 22823 Day
  Sex: Female

DRUGS (6)
  1. XEROQUEL [Suspect]
     Indication: DEPRESSION
     Route: 048
     Dates: start: 20130527, end: 20130903
  2. ABILIFY [Concomitant]
  3. ZOPICLONE [Concomitant]
     Indication: INSOMNIA
     Dosage: 7.5 MG AT 22:00
     Route: 048
     Dates: start: 201212
  4. XANAX [Concomitant]
     Indication: ANXIETY
     Route: 048
     Dates: start: 201304
  5. MIRTAZAPINE [Concomitant]
     Indication: DEPRESSION
     Dosage: 15 MG 2 DF AT 22:00
     Route: 048
     Dates: start: 20121205
  6. SEROPLEX [Concomitant]
     Indication: DEPRESSION
     Route: 048
     Dates: start: 20130715

REACTIONS (5)
  - VIIth nerve paralysis [Recovered/Resolved]
  - Depression [Unknown]
  - Dysarthria [Recovered/Resolved]
  - Therapeutic product ineffective for unapproved indication [Unknown]
  - Off label use [Recovered/Resolved]
